FAERS Safety Report 4772386-X (Version None)
Quarter: 2005Q3

REPORT INFORMATION
  Report Type: 
  Country: None (occurrence: None)
  Receive Date: 20050919
  Receipt Date: 20050317
  Transmission Date: 20060218
  Serious: No
  Sender: FDA-Public Use
  Company Number: US-BRISTOL-MYERS SQUIBB COMPANY-12905592

PATIENT
  Age: 53 Year
  Sex: Male

DRUGS (2)
  1. KENALOG-40 [Suspect]
     Indication: CHORIORETINAL DISORDER
     Route: 031
     Dates: start: 20050117, end: 20050117
  2. ZYMAR [Concomitant]

REACTIONS (1)
  - VISION BLURRED [None]
